FAERS Safety Report 9245890 (Version 1)
Quarter: 2013Q2

REPORT INFORMATION
  Report Type: Spontaneous
  Country: JP (occurrence: JP)
  Receive Date: 20130422
  Receipt Date: 20130422
  Transmission Date: 20140414
  Serious: Yes (Hospitalization)
  Sender: FDA-Public Use
  Company Number: JP-TEVA-397897ISR

PATIENT
  Sex: Male

DRUGS (8)
  1. CEFAZOLIN SODIUM,INJ,250MG1VIAL [Suspect]
     Indication: SURGERY
     Route: 042
     Dates: start: 20130408, end: 20130408
  2. SEVOFLURANE [Suspect]
     Dates: start: 20130408
  3. DIPRIVAN [Suspect]
     Route: 041
     Dates: start: 20130408
  4. FENTANYL [Suspect]
     Route: 042
     Dates: start: 20130408
  5. ULTIVA [Suspect]
     Route: 041
     Dates: start: 20130408
  6. ESLAX [Suspect]
     Route: 042
     Dates: start: 20130408
  7. ALPINY SUPPOSITORIES [Concomitant]
     Route: 054
  8. ANAPEINE 0.2% [Concomitant]
     Indication: ANAESTHESIA

REACTIONS (4)
  - Bladder disorder [Not Recovered/Not Resolved]
  - Mucous membrane disorder [None]
  - Cystitis [None]
  - Drug hypersensitivity [None]
